FAERS Safety Report 6655543-7 (Version None)
Quarter: 2010Q1

REPORT INFORMATION
  Report Type: 
  Country: None (occurrence: None)
  Receive Date: 20100329
  Receipt Date: 20100317
  Transmission Date: 20100710
  Serious: Yes (Hospitalization, Other)
  Sender: FDA-Public Use
  Company Number: JP-PFIZER INC-2010034028

PATIENT
  Age: 56 Year
  Sex: Female

DRUGS (4)
  1. MYCOBUTIN [Suspect]
     Indication: MYCOBACTERIAL INFECTION
     Dosage: 150 MG, 1X/DAY
     Route: 048
     Dates: start: 20100213, end: 20100303
  2. KLARICID [Concomitant]
  3. ESANBUTOL [Concomitant]
  4. KANAMYCIN SULFATE [Concomitant]
     Indication: MYCOBACTERIAL INFECTION
     Dosage: 0.7 G DAILY
     Route: 030

REACTIONS (5)
  - DECREASED APPETITE [None]
  - MALAISE [None]
  - PLATELET COUNT DECREASED [None]
  - PYREXIA [None]
  - WHITE BLOOD CELL COUNT DECREASED [None]
